FAERS Safety Report 16748986 (Version 1)
Quarter: 2019Q3

REPORT INFORMATION
  Report Type: Spontaneous
  Country: DE (occurrence: DE)
  Receive Date: 20190828
  Receipt Date: 20190828
  Transmission Date: 20191005
  Serious: Yes (Hospitalization, Other)
  Sender: FDA-Public Use
  Company Number: DE-TEVA-2019-DE-1097005

PATIENT
  Age: 84 Year
  Sex: Female

DRUGS (2)
  1. OLMESARTAN/AMLODIPIN [Suspect]
     Active Substance: AMLODIPINE\OLMESARTAN
     Dosage: NK MG, NK
  2. METOPROLOL. [Suspect]
     Active Substance: METOPROLOL
     Dosage: 47.5 MG, NK

REACTIONS (2)
  - Syncope [Unknown]
  - Product prescribing error [Unknown]

NARRATIVE: CASE EVENT DATE: 20180218
